FAERS Safety Report 26169062 (Version 1)
Quarter: 2025Q4

REPORT INFORMATION
  Report Type: Spontaneous
  Country: US (occurrence: None)
  Receive Date: 20251216
  Receipt Date: 20251216
  Transmission Date: 20260119
  Serious: Yes (Hospitalization)
  Sender: FDA-CTU
  Company Number: None

PATIENT
  Age: 26 Year
  Sex: Female

DRUGS (1)
  1. ICATIBANT ACETATE [Suspect]
     Active Substance: ICATIBANT ACETATE
     Indication: Complement deficiency disease
     Dosage: 30MG/3ML  PRN

REACTIONS (6)
  - Injection site reaction [None]
  - Injection site erythema [None]
  - Injection site bruising [None]
  - Sepsis [None]
  - Pneumonia [None]
  - Respiratory disorder [None]
